FAERS Safety Report 13294044 (Version 3)
Quarter: 2017Q2

REPORT INFORMATION
  Report Type: Report from Study
  Country: US (occurrence: US)
  Receive Date: 20170303
  Receipt Date: 20170512
  Transmission Date: 20170830
  Serious: Yes (Death, Hospitalization)
  Sender: FDA-Public Use
  Company Number: US-BAYER-2017-019140

PATIENT
  Age: 61 Year
  Sex: Male

DRUGS (7)
  1. OMEPRAZOL [Concomitant]
     Active Substance: OMEPRAZOLE
  2. CIPROFLOXACIN HCL [Concomitant]
     Active Substance: CIPROFLOXACIN HYDROCHLORIDE
  3. STIVARGA [Suspect]
     Active Substance: REGORAFENIB
     Indication: HEPATOCELLULAR CARCINOMA
     Dosage: 160 MG, QD, 3 WEEKS ON AND 1 WEEK OFF
     Route: 048
     Dates: start: 201701
  4. FUROSEMIDE. [Concomitant]
     Active Substance: FUROSEMIDE
  5. METOPROLOL SUCCINATE. [Concomitant]
     Active Substance: METOPROLOL SUCCINATE
  6. SUCRALFATE. [Concomitant]
     Active Substance: SUCRALFATE
  7. LACTULOSE. [Concomitant]
     Active Substance: LACTULOSE

REACTIONS (11)
  - Hospitalisation [None]
  - Frequent bowel movements [None]
  - Decreased appetite [None]
  - Insomnia [Unknown]
  - Death [Fatal]
  - Weight decreased [None]
  - Dry mouth [None]
  - Depressed mood [None]
  - Off label use [None]
  - Frustration tolerance decreased [None]
  - Ammonia increased [Not Recovered/Not Resolved]

NARRATIVE: CASE EVENT DATE: 2017
